FAERS Safety Report 5683802-3 (Version None)
Quarter: 2008Q1

REPORT INFORMATION
  Report Type: 
  Country: None (occurrence: None)
  Receive Date: 20080328
  Receipt Date: 20080313
  Transmission Date: 20080703
  Serious: Yes (Life-Threatening, Hospitalization)
  Sender: FDA-Public Use
  Company Number: FR-TYCO HEALTHCARE/MALLINCKRODT-T200800564

PATIENT

DRUGS (2)
  1. OPTIRAY 300 [Suspect]
     Indication: COMPUTERISED TOMOGRAM
     Dosage: 120 ML, SINGLE
     Route: 042
     Dates: start: 20070226, end: 20070226
  2. OPTIRAY 300 [Suspect]
     Indication: COMPUTERISED TOMOGRAM ABDOMEN

REACTIONS (4)
  - CIRCULATORY COLLAPSE [None]
  - HYPERSENSITIVITY [None]
  - RASH [None]
  - VOMITING [None]
